FAERS Safety Report 17091756 (Version 1)
Quarter: 2019Q4

REPORT INFORMATION
  Report Type: Spontaneous
  Country: GB (occurrence: GB)
  Receive Date: 20191129
  Receipt Date: 20191129
  Transmission Date: 20200122
  Serious: Yes (Other)
  Sender: FDA-Public Use
  Company Number: GB-TEVA-2019-GB-1143278

PATIENT
  Age: 4 Year
  Sex: Male
  Weight: 24 kg

DRUGS (5)
  1. CLENIL MODULITE [Concomitant]
     Active Substance: BECLOMETHASONE DIPROPIONATE
     Dosage: 4 DOSAGE FORMS
     Route: 055
     Dates: start: 20181207
  2. ERYTHROMYCIN ETHYLSUCCINATE. [Concomitant]
     Active Substance: ERYTHROMYCIN ETHYLSUCCINATE
     Dosage: 20 ML
     Dates: start: 20190314
  3. PREDNISOLONE. [Concomitant]
     Active Substance: PREDNISOLONE
     Dosage: 4 DOSAGE FORMS
     Dates: start: 20190208, end: 20190211
  4. CHLORPHENAMINE [Concomitant]
     Active Substance: CHLORPHENIRAMINE MALEATE
     Dosage: THREE TO FOUR TIMES 2.5 ML
     Dates: start: 20190208, end: 20190308
  5. PHENOXYMETHYLPENICILLIN [Suspect]
     Active Substance: PENICILLIN V
     Indication: PHARYNGITIS STREPTOCOCCAL
     Dosage: 125MG/5ML
     Route: 048
     Dates: start: 20190311, end: 20190314

REACTIONS (2)
  - Rash pruritic [Recovered/Resolved]
  - Skin irritation [Recovered/Resolved]
